FAERS Safety Report 8276392-2 (Version None)
Quarter: 2012Q2

REPORT INFORMATION
  Report Type: 
  Country: None (occurrence: None)
  Receive Date: 20120412
  Receipt Date: 20120403
  Transmission Date: 20120825
  Serious: Yes (Hospitalization)
  Sender: FDA-Public Use
  Company Number: DE-SANOFI-AVENTIS-2011SA007497

PATIENT
  Age: 46 Year
  Sex: Female
  Weight: 83.8 kg

DRUGS (13)
  1. CYCLOPHOSPHAMIDE [Suspect]
     Indication: BREAST CANCER
     Route: 041
     Dates: start: 20110107, end: 20110107
  2. PANTOPRAZOLE [Concomitant]
     Indication: PROPHYLAXIS
     Route: 048
     Dates: start: 20110106, end: 20110110
  3. DOCETAXEL [Suspect]
     Route: 041
  4. MESNA [Concomitant]
     Indication: PROPHYLAXIS
     Route: 042
     Dates: start: 20110107, end: 20110107
  5. METOCLOPRAMIDE [Concomitant]
     Indication: PROPHYLAXIS
     Route: 048
     Dates: start: 20110108, end: 20110110
  6. DOCETAXEL [Suspect]
     Indication: BREAST CANCER
     Route: 041
     Dates: start: 20110107, end: 20110107
  7. DEXAMETHASONE [Concomitant]
     Route: 048
     Dates: start: 20110109, end: 20110109
  8. ONDANSETRON [Concomitant]
     Indication: PROPHYLAXIS
     Route: 048
     Dates: start: 20110107, end: 20110107
  9. MESNA [Concomitant]
     Route: 048
     Dates: start: 20110107, end: 20110107
  10. DEXAMETHASONE [Concomitant]
     Route: 042
     Dates: start: 20110107, end: 20110107
  11. DEXAMETHASONE [Concomitant]
     Route: 048
     Dates: start: 20110108, end: 20110108
  12. DEXAMETHASONE [Concomitant]
     Indication: PROPHYLAXIS
     Route: 048
     Dates: start: 20110106, end: 20110106
  13. DEXAMETHASONE [Concomitant]
     Route: 048
     Dates: start: 20110107, end: 20110107

REACTIONS (1)
  - THROMBOSIS IN DEVICE [None]
